FAERS Safety Report 5500162-9 (Version None)
Quarter: 2007Q4

REPORT INFORMATION
  Report Type: 
  Country: None (occurrence: None)
  Receive Date: 20071025
  Receipt Date: 20071015
  Transmission Date: 20080405
  Serious: Yes (Hospitalization)
  Sender: FDA-Public Use
  Company Number: 2007SP020438

PATIENT
  Age: 45 Year
  Sex: Male
  Weight: 80 kg

DRUGS (3)
  1. TEMODAL [Suspect]
     Indication: GLIOBLASTOMA
     Dosage: 200 MG/M2; QD; PO
     Route: 048
     Dates: start: 20070312, end: 20070624
  2. DOXORUBICIN HCL [Suspect]
     Indication: GLIOBLASTOMA
     Dosage: 15 MG/M2
     Dates: start: 20070302, end: 20070709
  3. DOXORUBICIN HCL [Suspect]
     Indication: GLIOBLASTOMA
     Dosage: 15 MG/M2
     Dates: end: 20070926

REACTIONS (14)
  - ANOREXIA [None]
  - BRAIN OEDEMA [None]
  - CATHETER RELATED COMPLICATION [None]
  - COMPLEX PARTIAL SEIZURES [None]
  - COMPUTERISED TOMOGRAM ABNORMAL [None]
  - CONDITION AGGRAVATED [None]
  - DIZZINESS [None]
  - GENERAL PHYSICAL HEALTH DETERIORATION [None]
  - HEMIPARESIS [None]
  - ILL-DEFINED DISORDER [None]
  - INFECTION [None]
  - OEDEMA [None]
  - PNEUMOCYSTIS JIROVECI PNEUMONIA [None]
  - SPEECH DISORDER [None]
